FAERS Safety Report 22369220 (Version 2)
Quarter: 2023Q2

REPORT INFORMATION
  Report Type: Report from Study
  Country: US (occurrence: US)
  Receive Date: 20230525
  Receipt Date: 20230531
  Transmission Date: 20230722
  Serious: Yes (Hospitalization, Other)
  Sender: FDA-Public Use
  Company Number: US-ABBVIE-5179859

PATIENT
  Age: 23 Year
  Sex: Female

DRUGS (1)
  1. SKYRIZI [Suspect]
     Active Substance: RISANKIZUMAB-RZAA
     Indication: Psoriasis
     Dosage: TIME INTERVAL: 0.00833333 DAYS: STRENGTH: 150 MG
     Route: 058
     Dates: start: 20211208

REACTIONS (5)
  - Seizure [Recovered/Resolved]
  - Pain [Recovering/Resolving]
  - Dizziness [Recovering/Resolving]
  - Pain in extremity [Unknown]
  - Headache [Recovering/Resolving]

NARRATIVE: CASE EVENT DATE: 20230515
